FAERS Safety Report 8011017-2 (Version None)
Quarter: 2011Q4

REPORT INFORMATION
  Report Type: 
  Country: None (occurrence: None)
  Receive Date: 20111228
  Receipt Date: 20111216
  Transmission Date: 20120403
  Serious: Yes (Hospitalization, Other)
  Sender: FDA-Public Use
  Company Number: SE-ELI_LILLY_AND_COMPANY-SE201111002356

PATIENT
  Sex: Female

DRUGS (4)
  1. ESCITALOPRAM [Concomitant]
  2. ZYPREXA [Suspect]
     Dosage: UNK, UNKNOWN
  3. LYRICA [Concomitant]
  4. DIAZEPAM [Concomitant]

REACTIONS (4)
  - POISONING [None]
  - ANXIETY [None]
  - FATIGUE [None]
  - INTENTIONAL OVERDOSE [None]
